FAERS Safety Report 8079515-3 (Version None)
Quarter: 2012Q1

REPORT INFORMATION
  Report Type: 
  Country: None (occurrence: None)
  Receive Date: 20120128
  Receipt Date: 20110825
  Transmission Date: 20120608
  Serious: No
  Sender: FDA-Public Use
  Company Number: US-ABBOTT-11P-163-0849666-00

PATIENT
  Sex: Female
  Weight: 71.278 kg

DRUGS (4)
  1. ALBUTEROL [Concomitant]
     Indication: ASTHMA
  2. HUMIRA [Suspect]
     Indication: RHEUMATOID ARTHRITIS
     Dates: start: 20110401
  3. FOLIC ACID [Concomitant]
     Indication: PRODUCT USED FOR UNKNOWN INDICATION
  4. METHOTREXATE [Concomitant]
     Indication: PRODUCT USED FOR UNKNOWN INDICATION
     Dates: end: 20110701

REACTIONS (4)
  - HAEMORRHAGE [None]
  - SKIN DISCOLOURATION [None]
  - ORAL HERPES [None]
  - LIP BLISTER [None]
